FAERS Safety Report 22083612 (Version 3)
Quarter: 2023Q2

REPORT INFORMATION
  Report Type: Spontaneous
  Country: IT (occurrence: IT)
  Receive Date: 20230310
  Receipt Date: 20230414
  Transmission Date: 20230722
  Serious: Yes (Hospitalization)
  Sender: FDA-Public Use
  Company Number: None

PATIENT
  Age: 4 Year
  Sex: Female

DRUGS (2)
  1. AMOXICILLIN\CLAVULANIC ACID [Suspect]
     Active Substance: AMOXICILLIN\CLAVULANIC ACID
     Indication: Pharyngotonsillitis
     Dosage: 2 DOSAGE FORM, QD (DOSAGGIO: 3 UNITA DI MISURA: UNITA POSOLOGICA FREQUENZA SOMMINISTRAZIONE: CICLICA
     Route: 048
     Dates: start: 20230215, end: 20230222
  2. AMOXICILLIN\CLAVULANIC ACID [Suspect]
     Active Substance: AMOXICILLIN\CLAVULANIC ACID
     Dosage: 3 DOSAGE FORM, QD (DOSAGGIO: 3UNITA DI MISURA: UNITA POSOLOGICA FREQUENZA SOMMINISTRAZIONE: CICLICA
     Route: 048
     Dates: start: 20230215, end: 20230222

REACTIONS (4)
  - Oedema [Recovered/Resolved]
  - Pain [Recovered/Resolved]
  - Arthralgia [Recovered/Resolved]
  - Urticaria [Recovered/Resolved]

NARRATIVE: CASE EVENT DATE: 20230222
